FAERS Safety Report 16034617 (Version 1)
Quarter: 2019Q1

REPORT INFORMATION
  Report Type: Spontaneous
  Country: US (occurrence: US)
  Receive Date: 20190305
  Receipt Date: 20190305
  Transmission Date: 20190418
  Serious: No
  Sender: FDA-Public Use
  Company Number: US-TEVA-2019-US-1010170

PATIENT
  Sex: Female

DRUGS (1)
  1. COPAXONE [Suspect]
     Active Substance: GLATIRAMER ACETATE
     Dosage: FORM STRENGTH-UNKNOWN
     Route: 065
     Dates: start: 201811

REACTIONS (5)
  - Restless legs syndrome [Unknown]
  - Feeling cold [Unknown]
  - Pain [Unknown]
  - Paraesthesia [Unknown]
  - Hypoaesthesia [Unknown]
